FAERS Safety Report 9687721 (Version 1)
Quarter: 2013Q4

REPORT INFORMATION
  Report Type: Spontaneous
  Country: GB (occurrence: None)
  Receive Date: 20131112
  Receipt Date: 20131112
  Transmission Date: 20140711
  Serious: Yes (Other)
  Sender: FDA-Public Use
  Company Number: CL-530-2013

PATIENT
  Age: 40 Year
  Sex: Female
  Weight: 53.52 kg

DRUGS (2)
  1. METRONIDAZOLE [Suspect]
     Route: 048
  2. IRON [Concomitant]

REACTIONS (6)
  - Urticaria chronic [None]
  - Mechanical urticaria [None]
  - Pruritus [None]
  - Insomnia [None]
  - Disturbance in attention [None]
  - Impaired work ability [None]
